FAERS Safety Report 15949321 (Version 1)
Quarter: 2019Q1

REPORT INFORMATION
  Report Type: Spontaneous
  Country: US (occurrence: US)
  Receive Date: 20190212
  Receipt Date: 20190212
  Transmission Date: 20190417
  Serious: No
  Sender: FDA-Public Use
  Company Number: US-UNITED THERAPEUTICS-UNT-2019-002102

PATIENT
  Age: 13 Year
  Sex: Female

DRUGS (1)
  1. REMODULIN [Suspect]
     Active Substance: TREPROSTINIL
     Indication: PULMONARY ARTERIAL HYPERTENSION
     Dosage: 0.157 ?G/KG, CONTINUING
     Route: 058
     Dates: start: 20170913

REACTIONS (3)
  - Diarrhoea [Unknown]
  - Device dislocation [Unknown]
  - Vomiting [Unknown]

NARRATIVE: CASE EVENT DATE: 20190203
